FAERS Safety Report 8154025 (Version 2)
Quarter: 2012Q4

REPORT INFORMATION
  Report Type: Report from Study
  Country: US (occurrence: US)
  Receive Date: 20110923
  Receipt Date: 20121121
  Transmission Date: 20130627
  Serious: Yes (Hospitalization)
  Sender: FDA-Public Use
  Company Number: US-ACTELION-A-US2011-54121

PATIENT
  Age: 45 Year
  Sex: Female

DRUGS (2)
  1. TRACLEER [Suspect]
     Indication: PULMONARY ARTERIAL HYPERTENSION
     Dosage: UNK
     Route: 048
     Dates: start: 20110624
  2. TYLENOL W/CODEINE [Concomitant]

REACTIONS (5)
  - Unresponsive to stimuli [Unknown]
  - Pneumonia [Unknown]
  - Haematocrit decreased [Unknown]
  - Ligament sprain [Unknown]
  - Transfusion [Unknown]
